FAERS Safety Report 8445816-X (Version None)
Quarter: 2012Q2

REPORT INFORMATION
  Report Type: 
  Country: None (occurrence: None)
  Receive Date: 20120618
  Receipt Date: 20120614
  Transmission Date: 20120825
  Serious: Yes (Hospitalization, Other)
  Sender: FDA-Public Use
  Company Number: US-BAYER-2012-059576

PATIENT
  Age: 47 Year
  Sex: Male

DRUGS (3)
  1. INTERFERON BETA-1B [Suspect]
     Dosage: UNK
     Dates: start: 20100701, end: 20120411
  2. INTERFERON BETA-1B [Suspect]
     Indication: MULTIPLE SCLEROSIS
     Dosage: UNK
     Route: 058
     Dates: start: 20021101, end: 20091101
  3. INTERFERON BETA-1B [Suspect]
     Dosage: 8 MIU, QOD
     Route: 058
     Dates: start: 20120419

REACTIONS (10)
  - FEELING HOT [None]
  - MUSCLE SPASMS [None]
  - INJECTION SITE PAIN [None]
  - ASTHENIA [None]
  - PAIN [None]
  - HYPOAESTHESIA [None]
  - INJECTION SITE ERYTHEMA [None]
  - EJECTION FRACTION DECREASED [None]
  - HYPERHIDROSIS [None]
  - MYOCARDIAL INFARCTION [None]
